FAERS Safety Report 17772918 (Version 2)
Quarter: 2020Q4

REPORT INFORMATION
  Report Type: Spontaneous
  Country: US (occurrence: US)
  Receive Date: 20200512
  Receipt Date: 20201222
  Transmission Date: 20210113
  Serious: Yes (Other)
  Sender: FDA-Public Use
  Company Number: US-GILEAD-2020-0466284

PATIENT
  Age: 36 Year
  Sex: Male

DRUGS (2)
  1. TRUVADA [Suspect]
     Active Substance: EMTRICITABINE\TENOFOVIR DISOPROXIL FUMARATE
     Indication: HIV INFECTION
     Dosage: UNK
     Route: 048
     Dates: start: 201506, end: 2017
  2. VIREAD [Suspect]
     Active Substance: TENOFOVIR DISOPROXIL FUMARATE
     Indication: HIV INFECTION
     Dosage: UNK
     Route: 048
     Dates: start: 201505

REACTIONS (8)
  - Osteonecrosis [Unknown]
  - Bone density decreased [Recovered/Resolved]
  - Renal injury [Unknown]
  - Bone loss [Unknown]
  - Limb fracture [Unknown]
  - Tooth loss [Not Recovered/Not Resolved]
  - Skeletal injury [Unknown]
  - Multiple fractures [Unknown]

NARRATIVE: CASE EVENT DATE: 20160509
